FAERS Safety Report 8098827-0 (Version None)
Quarter: 2012Q1

REPORT INFORMATION
  Report Type: 
  Country: None (occurrence: None)
  Receive Date: 20120129
  Receipt Date: 20110922
  Transmission Date: 20120608
  Serious: No
  Sender: FDA-Public Use
  Company Number: US-ABBOTT-11P-163-0857512-00

PATIENT
  Sex: Female

DRUGS (1)
  1. HUMIRA [Suspect]
     Indication: PSORIASIS
     Dosage: UNDER THE SKIN
     Dates: start: 20100727

REACTIONS (3)
  - MUSCULOSKELETAL PAIN [None]
  - TREATMENT FAILURE [None]
  - PSORIASIS [None]
